FAERS Safety Report 6233542-7 (Version None)
Quarter: 2009Q2

REPORT INFORMATION
  Report Type: 
  Country: None (occurrence: None)
  Receive Date: 20090617
  Receipt Date: 20090616
  Transmission Date: 20091009
  Serious: Yes (Hospitalization)
  Sender: FDA-Public Use
  Company Number: FR-WYE-G03859009

PATIENT
  Sex: Female
  Weight: 50 kg

DRUGS (3)
  1. ADVIL [Suspect]
     Indication: MIGRAINE
     Dosage: 10 TABLETS WITHIN 3 DAYS
     Route: 048
     Dates: start: 20090331, end: 20090402
  2. ROWASA [Suspect]
     Indication: COLITIS ULCERATIVE
     Route: 054
     Dates: start: 20090407, end: 20090419
  3. ROWASA [Suspect]
     Route: 054
     Dates: end: 20090406

REACTIONS (4)
  - COLITIS ULCERATIVE [None]
  - CONDITION AGGRAVATED [None]
  - PANCREATITIS ACUTE [None]
  - PERITONEAL EFFUSION [None]
